FAERS Safety Report 6987798-3 (Version None)
Quarter: 2010Q3

REPORT INFORMATION
  Report Type: 
  Country: None (occurrence: None)
  Receive Date: 20100830
  Receipt Date: 20100729
  Transmission Date: 20110219
  Serious: No
  Sender: FDA-Public Use
  Company Number: 2010S1000688

PATIENT
  Age: 78 Year
  Sex: Female
  Weight: 78 kg

DRUGS (7)
  1. LIVALO [Suspect]
     Indication: HYPERCHOLESTEROLAEMIA
     Dosage: 4 MG;1X;PO
     Route: 048
     Dates: start: 20100728, end: 20100728
  2. MACROBID /00984601/ [Concomitant]
  3. LIVER TONIC [Concomitant]
  4. TENORMIN [Concomitant]
  5. NORVASC [Concomitant]
  6. XANAX [Concomitant]
  7. KLOR-CON/25 [Concomitant]

REACTIONS (2)
  - DIZZINESS [None]
  - NAUSEA [None]
